FAERS Safety Report 6501493-6 (Version None)
Quarter: 2009Q4

REPORT INFORMATION
  Report Type: 
  Country: None (occurrence: None)
  Receive Date: 20091216
  Receipt Date: 20091208
  Transmission Date: 20100525
  Serious: Yes (Death, Hospitalization)
  Sender: FDA-Public Use
  Company Number: A0789154A

PATIENT
  Age: 67 Year

DRUGS (1)
  1. AVANDIA [Suspect]
     Route: 065
     Dates: end: 20030101

REACTIONS (1)
  - MYOCARDIAL INFARCTION [None]
